FAERS Safety Report 24844871 (Version 1)
Quarter: 2025Q1

REPORT INFORMATION
  Report Type: Report from Study
  Country: CN (occurrence: CN)
  Receive Date: 20250115
  Receipt Date: 20250115
  Transmission Date: 20250408
  Serious: Yes (Hospitalization, Other)
  Sender: BIOGEN
  Company Number: CN-BAT-2024BAT001074

PATIENT
  Age: 66 Year
  Sex: Male
  Weight: 41 kg

DRUGS (10)
  1. TOFIDENCE [Suspect]
     Active Substance: TOCILIZUMAB-BAVI
     Indication: Prophylaxis
     Route: 041
     Dates: start: 20241023, end: 20241023
  2. INVESTIGATIONAL PRODUCT [Suspect]
     Active Substance: INVESTIGATIONAL PRODUCT
     Indication: Lung adenocarcinoma
     Route: 041
     Dates: start: 20241023, end: 20241023
  3. METFORMIN [Concomitant]
     Active Substance: METFORMIN HYDROCHLORIDE
     Indication: Type 2 diabetes mellitus
     Dosage: EVERY NIGHT
     Route: 048
     Dates: start: 20220928
  4. ACARBOSE [Concomitant]
     Active Substance: ACARBOSE
     Indication: Blood glucose decreased
     Dosage: 1 UNIT
     Route: 048
     Dates: start: 20220928
  5. NIFEDIPINE [Concomitant]
     Active Substance: NIFEDIPINE
     Indication: Hypertension
     Dosage: 1 UNIT, EXTENDED RELEASE TABLET
     Route: 048
     Dates: start: 20220928
  6. SITAGLIPTIN PHOSPHATE [Concomitant]
     Active Substance: SITAGLIPTIN PHOSPHATE
     Indication: Type 2 diabetes mellitus
     Dosage: 1 UNIT IN THE MORNING
     Route: 048
     Dates: start: 20211227
  7. TAMSULOSIN HYDROCHLORIDE [Concomitant]
     Active Substance: TAMSULOSIN HYDROCHLORIDE
     Indication: Benign prostatic hyperplasia
     Dosage: 1 UNIT
     Route: 048
     Dates: start: 20220104
  8. FINASTERIDE [Concomitant]
     Active Substance: FINASTERIDE
     Indication: Benign prostatic hyperplasia
     Route: 048
     Dates: start: 20211227
  9. OMEPRAZOLE [Concomitant]
     Active Substance: OMEPRAZOLE
     Indication: Chronic gastritis
     Route: 048
     Dates: start: 20220215, end: 20241023
  10. DOMPERIDONE [Concomitant]
     Active Substance: DOMPERIDONE
     Indication: Chronic gastritis
     Route: 048
     Dates: start: 20241012, end: 20241023

REACTIONS (2)
  - Immune-mediated enterocolitis [Recovering/Resolving]
  - Off label use [Unknown]

NARRATIVE: CASE EVENT DATE: 20241023
